FAERS Safety Report 21850208 (Version 1)
Quarter: 2023Q1

REPORT INFORMATION
  Report Type: Spontaneous
  Country: JP (occurrence: JP)
  Receive Date: 20230111
  Receipt Date: 20230111
  Transmission Date: 20230418
  Serious: Yes (Death, Life-Threatening)
  Sender: FDA-Public Use
  Company Number: A202200679-001

PATIENT
  Age: 79 Year
  Sex: Male
  Weight: 46 kg

DRUGS (10)
  1. BENDAMUSTINE HYDROCHLORIDE [Suspect]
     Active Substance: BENDAMUSTINE HYDROCHLORIDE
     Indication: Diffuse large B-cell lymphoma recurrent
     Dosage: 90 MG/M2, CYCLE 1 PBR THERAPY
     Route: 042
     Dates: start: 20210629
  2. BENDAMUSTINE HYDROCHLORIDE [Suspect]
     Active Substance: BENDAMUSTINE HYDROCHLORIDE
     Dosage: 90 MG/M2, CYCLE  2 PBR THERAPY
     Route: 042
     Dates: start: 20210719
  3. RITUXAN [Suspect]
     Active Substance: RITUXIMAB
     Indication: Diffuse large B-cell lymphoma recurrent
     Dosage: 375 MG/M2, CYCLE 1 PBR THERAPY
     Route: 042
     Dates: start: 20210628
  4. RITUXAN [Suspect]
     Active Substance: RITUXIMAB
     Dosage: 375 MG/M2, CYCLE 2 PBR THERAPY
     Route: 042
     Dates: start: 20210719
  5. POLIVY [Suspect]
     Active Substance: POLATUZUMAB VEDOTIN-PIIQ
     Indication: Diffuse large B-cell lymphoma recurrent
     Dosage: 82 MG, CYCLE 1 PBR THERAPY
     Route: 042
     Dates: start: 20210629
  6. POLIVY [Suspect]
     Active Substance: POLATUZUMAB VEDOTIN-PIIQ
     Dosage: 82 MG, CYCLE 2 PBR THERAPY
     Route: 042
     Dates: start: 20210719
  7. NEXIUM [Concomitant]
     Active Substance: ESOMEPRAZOLE MAGNESIUM
     Indication: Prophylaxis against gastrointestinal ulcer
     Dosage: 20 MG, QD
     Route: 048
     Dates: start: 20190524, end: 20210719
  8. FEBUXOSTAT [Concomitant]
     Active Substance: FEBUXOSTAT
     Indication: Hyperuricaemia
     Dosage: 20 MG, QD
     Route: 048
     Dates: start: 20190524, end: 20210719
  9. ELIQUIS [Concomitant]
     Active Substance: APIXABAN
     Indication: Deep vein thrombosis
     Dosage: 2.5 MG/ 12 HOURS
     Route: 048
     Dates: start: 20210310, end: 20210719
  10. ENTECAVIR OD [Concomitant]
     Indication: Chronic hepatitis B
     Dosage: 0.5 MG
     Route: 048
     Dates: start: 20190712, end: 20210719

REACTIONS (3)
  - Adrenal insufficiency [Fatal]
  - Tumour lysis syndrome [Fatal]
  - Infusion related reaction [None]

NARRATIVE: CASE EVENT DATE: 20210701
